FAERS Safety Report 7636434-1 (Version None)
Quarter: 2011Q3

REPORT INFORMATION
  Report Type: 
  Country: None (occurrence: None)
  Receive Date: 20110726
  Receipt Date: 20110714
  Transmission Date: 20111222
  Serious: Yes (Other)
  Sender: FDA-Public Use
  Company Number: US-ASTRAZENECA-2011SE42112

PATIENT
  Age: 50 Year
  Sex: Female
  Weight: 81.6 kg

DRUGS (14)
  1. VISTARIL [Concomitant]
  2. VALIUM [Concomitant]
  3. MORPHINE [Concomitant]
  4. SOMA [Concomitant]
  5. SEROQUEL [Suspect]
     Indication: DEPRESSION
     Route: 048
     Dates: start: 20000101, end: 20050101
  6. NULEV [Concomitant]
  7. VITAMIN B-12 [Concomitant]
  8. NEXIUM [Concomitant]
  9. SEROQUEL [Suspect]
     Route: 048
     Dates: start: 20050101
  10. PROZAC [Concomitant]
  11. TORADOL [Concomitant]
  12. TEMAZEPAM [Concomitant]
  13. ULTRAM [Concomitant]
  14. PHENERGAN HCL [Concomitant]

REACTIONS (10)
  - TUMOUR EXCISION [None]
  - INTERVERTEBRAL DISC PROTRUSION [None]
  - RHEUMATOID ARTHRITIS [None]
  - HIATUS HERNIA [None]
  - PANCREATIC CARCINOMA [None]
  - EATING DISORDER [None]
  - OESOPHAGEAL PERFORATION [None]
  - SURGERY [None]
  - ABDOMINAL DISCOMFORT [None]
  - SYSTEMIC LUPUS ERYTHEMATOSUS [None]
